FAERS Safety Report 21352031 (Version 1)
Quarter: 2022Q3

REPORT INFORMATION
  Report Type: Spontaneous
  Country: PT (occurrence: PT)
  Receive Date: 20220920
  Receipt Date: 20220920
  Transmission Date: 20221027
  Serious: Yes (Other)
  Sender: FDA-Public Use
  Company Number: PT-ViiV Healthcare Limited-PT2022EME127916

PATIENT
  Age: 49 Year
  Sex: Male

DRUGS (7)
  1. IVERMECTIN [Suspect]
     Active Substance: IVERMECTIN
     Indication: Strongyloidiasis
     Dosage: UNK
     Dates: start: 20220728
  2. IVERMECTIN [Suspect]
     Active Substance: IVERMECTIN
     Indication: Schistosomiasis
  3. PYRIMETHAMINE [Suspect]
     Active Substance: PYRIMETHAMINE
     Indication: Cerebral toxoplasmosis
     Dosage: UNK
     Dates: start: 20220719
  4. PYRIMETHAMINE [Suspect]
     Active Substance: PYRIMETHAMINE
     Indication: Pulmonary embolism
  5. DOVATO [Suspect]
     Active Substance: DOLUTEGRAVIR SODIUM\LAMIVUDINE
     Indication: HIV infection
     Dosage: UNK
     Dates: start: 20220721
  6. PRAZIQUANTEL [Suspect]
     Active Substance: PRAZIQUANTEL
     Indication: Schistosomiasis
     Dosage: UNK
     Dates: start: 20220728
  7. PRAZIQUANTEL [Suspect]
     Active Substance: PRAZIQUANTEL
     Indication: Strongyloidiasis

REACTIONS (4)
  - Hepatotoxicity [Unknown]
  - Strongyloidiasis [Unknown]
  - Schistosomiasis [Unknown]
  - Myelosuppression [Unknown]

NARRATIVE: CASE EVENT DATE: 20220728
